FAERS Safety Report 6269179-3 (Version None)
Quarter: 2009Q3

REPORT INFORMATION
  Report Type: 
  Country: None (occurrence: None)
  Receive Date: 20090715
  Receipt Date: 20090703
  Transmission Date: 20100115
  Serious: No
  Sender: FDA-Public Use
  Company Number: JP-PFIZER INC-2009225292

PATIENT
  Age: 24 Year

DRUGS (2)
  1. ZITHROMAC SR [Suspect]
     Indication: ACNE
     Dosage: 2 G, SINGLE
     Route: 048
     Dates: start: 20090601, end: 20090601
  2. ZITHROMAC SR [Suspect]
     Indication: SKIN INFECTION

REACTIONS (1)
  - DEPRESSED LEVEL OF CONSCIOUSNESS [None]
